FAERS Safety Report 11240981 (Version 2)
Quarter: 2015Q3

REPORT INFORMATION
  Report Type: Report from Study
  Country: DE (occurrence: DE)
  Receive Date: 20150706
  Receipt Date: 20150728
  Transmission Date: 20151125
  Serious: Yes (Hospitalization)
  Sender: FDA-Public Use
  Company Number: DE-BAXALTA-2013BAX045168

PATIENT
  Age: 36 Year
  Sex: Male
  Weight: 60 kg

DRUGS (11)
  1. TENOFOVIR [Concomitant]
     Active Substance: TENOFOVIR
     Indication: HEPATITIS B
  2. OCTOCOG ALFA; BAXJECT II [Suspect]
     Active Substance: ANTIHEMOPHILIC FACTOR, HUMAN RECOMBINANT
     Indication: HAEMORRHAGE PROPHYLAXIS
  3. ARCOXIA [Concomitant]
     Active Substance: ETORICOXIB
     Indication: ANALGESIC THERAPY
  4. CRANBERRY DRAG [Concomitant]
     Indication: PRODUCT USED FOR UNKNOWN INDICATION
     Dosage: UNK
     Route: 065
  5. OCTOCOG ALFA; BAXJECT II [Suspect]
     Active Substance: ANTIHEMOPHILIC FACTOR, HUMAN RECOMBINANT
     Indication: FACTOR VIII DEFICIENCY
     Dosage: 1000 IU, 3X A WEEK
     Route: 042
     Dates: start: 20060107, end: 20130411
  6. TENOFOVIR [Concomitant]
     Active Substance: TENOFOVIR
     Indication: ANTIRETROVIRAL THERAPY
     Dosage: 245MILLIGRAM1X A DAY
     Route: 048
     Dates: start: 20130101
  7. ARCOXIA [Concomitant]
     Active Substance: ETORICOXIB
     Indication: ANTIINFLAMMATORY THERAPY
     Dosage: 60MILLIGRAMAS NEEDED
     Route: 048
  8. LAMIVUDINMONO [Concomitant]
     Indication: PRODUCT USED FOR UNKNOWN INDICATION
     Dosage: 100MILLIGRAM1X A DAY
     Route: 065
     Dates: start: 200405, end: 201101
  9. OMEPRAZOLE. [Concomitant]
     Active Substance: OMEPRAZOLE
     Indication: PROPHYLAXIS AGAINST GASTROINTESTINAL ULCER
     Dosage: 40MILLIGRAM1X A DAY
     Route: 048
     Dates: start: 20130418
  10. CYCLOCAPRON [Concomitant]
     Indication: HAEMORRHAGE PROPHYLAXIS
     Dosage: ON DEMAND
     Route: 048
     Dates: start: 20130411
  11. CIPROFLOXACIN. [Concomitant]
     Active Substance: CIPROFLOXACIN
     Indication: INFECTION
     Dosage: 500 MG, 1X A DAY
     Route: 048
     Dates: start: 20150601, end: 20150606

REACTIONS (3)
  - Neoplasm recurrence [Recovered/Resolved]
  - Gastric neoplasm [Recovered/Resolved]
  - Neuroendocrine tumour [Recovered/Resolved]

NARRATIVE: CASE EVENT DATE: 20130411
